FAERS Safety Report 8555203-1 (Version None)
Quarter: 2012Q3

REPORT INFORMATION
  Report Type: 
  Country: None (occurrence: None)
  Receive Date: 20120731
  Receipt Date: 20120718
  Transmission Date: 20120928
  Serious: Yes (Death, Other)
  Sender: FDA-Public Use
  Company Number: JP-ROCHE-1085562

PATIENT
  Age: 60 Year
  Sex: Male
  Weight: 73 kg

DRUGS (5)
  1. FOLIC ACID [Concomitant]
     Indication: PROPHYLAXIS
     Route: 048
  2. ACTEMRA [Suspect]
     Indication: RHEUMATOID ARTHRITIS
     Route: 041
     Dates: start: 20101025, end: 20120502
  3. PREDNISOLONE [Concomitant]
     Indication: RHEUMATOID ARTHRITIS
     Route: 048
  4. LANSOPRAZOLE [Concomitant]
     Indication: GASTRITIS
     Route: 048
  5. METHOTREXATE [Concomitant]
     Indication: RHEUMATOID ARTHRITIS
     Route: 048

REACTIONS (4)
  - MYOCARDIAL INFARCTION [None]
  - DROWNING [None]
  - EMBOLISM [None]
  - SEPSIS [None]
